FAERS Safety Report 10214608 (Version 1)
Quarter: 2014Q2

REPORT INFORMATION
  Report Type: Spontaneous
  Country: BE (occurrence: BE)
  Receive Date: 20140603
  Receipt Date: 20140603
  Transmission Date: 20141212
  Serious: Yes (Hospitalization)
  Sender: FDA-Public Use
  Company Number: BE-GLAXOSMITHKLINE-B0998948A

PATIENT
  Sex: Female

DRUGS (2)
  1. IMITREX [Suspect]
     Indication: MIGRAINE
     Route: 058
  2. SUMATRIPTAN [Suspect]
     Indication: MIGRAINE
     Dosage: 2U PER DAY
     Route: 048

REACTIONS (3)
  - Flushing [Unknown]
  - Vasodilatation [Unknown]
  - Pleural disorder [Unknown]
